FAERS Safety Report 5059067-2 (Version None)
Quarter: 2006Q3

REPORT INFORMATION
  Report Type: 
  Country: None (occurrence: None)
  Receive Date: 20060718
  Receipt Date: 20060703
  Transmission Date: 20061208
  Serious: No
  Sender: FDA-Public Use
  Company Number: DSA_60994_2006

PATIENT
  Age: 4 Year
  Sex: Male
  Weight: 17.2367 kg

DRUGS (5)
  1. DIASTAT [Suspect]
     Indication: CONVULSION
     Dosage: DF ONCE RC
     Route: 054
     Dates: start: 20060702, end: 20060702
  2. RANITIDINE HCL [Concomitant]
  3. PREVACID [Concomitant]
  4. BACLOFEN [Concomitant]
  5. TRILEPTAL [Concomitant]

REACTIONS (3)
  - CONVULSION [None]
  - INCORRECT DOSE ADMINISTERED [None]
  - RESPIRATORY DEPRESSION [None]
